FAERS Safety Report 17024091 (Version 2)
Quarter: 2019Q4

REPORT INFORMATION
  Report Type: Spontaneous
  Country: JP (occurrence: JP)
  Receive Date: 20191113
  Receipt Date: 20191219
  Transmission Date: 20200122
  Serious: Yes (Death, Other)
  Sender: FDA-Public Use
  Company Number: JP-BRISTOL-MYERS SQUIBB COMPANY-BMS-2019-088888

PATIENT
  Age: 77 Year
  Sex: Female
  Weight: 46.3 kg

DRUGS (1)
  1. OPDIVO [Suspect]
     Active Substance: NIVOLUMAB
     Indication: PLEURAL MESOTHELIOMA MALIGNANT
     Dosage: 240 MILLIGRAM
     Route: 041
     Dates: start: 20190827, end: 20190827

REACTIONS (4)
  - Tumour hyperprogression [Fatal]
  - Intentional product use issue [Unknown]
  - Circulatory collapse [Fatal]
  - Pain [Fatal]

NARRATIVE: CASE EVENT DATE: 20190829
